FAERS Safety Report 14244305 (Version 3)
Quarter: 2018Q1

REPORT INFORMATION
  Report Type: Spontaneous
  Country: DE (occurrence: DE)
  Receive Date: 20171201
  Receipt Date: 20180323
  Transmission Date: 20180508
  Serious: Yes (Other)
  Sender: FDA-Public Use
  Company Number: DE-JNJFOC-20171137926

PATIENT
  Sex: Male
  Weight: 81.1 kg

DRUGS (2)
  1. XARELTO [Suspect]
     Active Substance: RIVAROXABAN
     Indication: ATRIAL FIBRILLATION
     Route: 048
     Dates: start: 20171108, end: 20171113
  2. XARELTO [Suspect]
     Active Substance: RIVAROXABAN
     Indication: VASCULAR STENT INSERTION
     Route: 048
     Dates: start: 20171108, end: 20171113

REACTIONS (6)
  - Arthralgia [Recovered/Resolved]
  - Myalgia [Recovered/Resolved]
  - Tachycardia [Recovered/Resolved]
  - Arrhythmia [Recovered/Resolved]
  - Bone pain [Recovered/Resolved]
  - Sleep disorder [Recovered/Resolved]
